FAERS Safety Report 5697880-9 (Version None)
Quarter: 2008Q2

REPORT INFORMATION
  Report Type: 
  Country: None (occurrence: None)
  Receive Date: 20080404
  Receipt Date: 20080404
  Transmission Date: 20081010
  Serious: Yes (Other)
  Sender: FDA-Public Use
  Company Number: None

PATIENT
  Age: 60 Year
  Sex: Female

DRUGS (8)
  1. AUGMENTIN '125' [Suspect]
     Dates: start: 20060329, end: 20060405
  2. LEVAQUIN [Concomitant]
  3. PEMPRO [Concomitant]
  4. COENZYME Q10 [Concomitant]
  5. NEXIUM [Concomitant]
  6. VITAMIN B6 [Concomitant]
  7. VITAMIN B-12 [Concomitant]
  8. MULTI-VITAMIN [Concomitant]

REACTIONS (8)
  - ALANINE AMINOTRANSFERASE INCREASED [None]
  - ASPARTATE AMINOTRANSFERASE INCREASED [None]
  - BLOOD BILIRUBIN INCREASED [None]
  - CHOLESTASIS [None]
  - CHROMATURIA [None]
  - LIVER INJURY [None]
  - PRURITUS [None]
  - YELLOW SKIN [None]
